FAERS Safety Report 22058819 (Version 1)
Quarter: 2023Q1

REPORT INFORMATION
  Report Type: Spontaneous
  Country: DE (occurrence: DE)
  Receive Date: 20230303
  Receipt Date: 20230303
  Transmission Date: 20230417
  Serious: Yes (Life-Threatening, Congenital Anomaly, Other)
  Sender: FDA-Public Use
  Company Number: None

PATIENT
  Sex: Female
  Weight: 3 kg

DRUGS (17)
  1. IBUPROFEN [Suspect]
     Active Substance: IBUPROFEN
     Indication: Patent ductus arteriosus
     Dosage: UNKNOWN
     Route: 065
  2. SILDENAFIL [Suspect]
     Active Substance: SILDENAFIL
     Indication: Pulmonary hypertension
     Dosage: 1 MG (1MG INCREASE PER DOSE, FINAL DOSE 4X4MG)
     Route: 048
  3. SPIRONOLACTONE [Suspect]
     Active Substance: SPIRONOLACTONE
     Indication: Product used for unknown indication
     Dosage: 5 MILLIGRAM, BID
     Route: 048
  4. VANCOMYCIN [Suspect]
     Active Substance: VANCOMYCIN
     Indication: Device related sepsis
     Dosage: UNKNOWN
     Route: 065
  5. CISATRACURIUM [Suspect]
     Active Substance: CISATRACURIUM
     Indication: Product used for unknown indication
     Dosage: UNKNOWN
     Route: 042
  6. INDOMETHACIN [Suspect]
     Active Substance: INDOMETHACIN
     Indication: Patent ductus arteriosus
     Dosage: UNKNOWN
     Route: 065
  7. LEVOSIMENDAN [Suspect]
     Active Substance: LEVOSIMENDAN
     Indication: Pulmonary hypertension
     Dosage: UNKNOWN
     Route: 042
  8. MACITENTAN [Suspect]
     Active Substance: MACITENTAN
     Indication: Pulmonary hypertension
     Dosage: UNKNOWN
     Route: 048
  9. MEROPENEM [Suspect]
     Active Substance: MEROPENEM
     Indication: Device related sepsis
     Dosage: UNKNOWN
     Route: 065
  10. MIDAZOLAM [Suspect]
     Active Substance: MIDAZOLAM
     Indication: Product used for unknown indication
     Dosage: UNKNOWN
     Route: 042
  11. MILRINONE [Suspect]
     Active Substance: MILRINONE
     Indication: Pulmonary hypertension
     Dosage: UNKNOWN
     Route: 042
  12. MORPHINE [Suspect]
     Active Substance: MORPHINE
     Indication: Product used for unknown indication
     Dosage: UNKNOWN
     Route: 042
  13. NOREPINEPHRINE [Suspect]
     Active Substance: NOREPINEPHRINE
     Indication: Pulmonary hypertension
     Dosage: UNKNOWN
     Route: 042
  14. ROCURONIUM [Suspect]
     Active Substance: ROCURONIUM BROMIDE
     Indication: Product used for unknown indication
     Dosage: UNKNOWN
     Route: 042
  15. DEXAMETHASONE [Concomitant]
     Active Substance: DEXAMETHASONE
     Indication: Product used for unknown indication
     Dosage: UNKNOWN
     Route: 042
  16. NITRIC OXIDE [Concomitant]
     Active Substance: NITRIC OXIDE
     Indication: Pulmonary hypertension
     Dosage: UNKNOWN
     Route: 065
  17. SILDENAFIL [Concomitant]
     Active Substance: SILDENAFIL
     Indication: Pulmonary hypertension
     Dosage: DAYS 2-9:STARTING AND FINAL DOSE 3.1MG/KG/DAY
     Route: 042

REACTIONS (14)
  - Drug ineffective [Unknown]
  - Upper respiratory tract infection [Unknown]
  - Lethargy [Unknown]
  - Neurodevelopmental disorder [Unknown]
  - Acidosis [Unknown]
  - Device related sepsis [Unknown]
  - Dysphagia [Unknown]
  - Heart valve incompetence [Unknown]
  - Pulmonary hypertensive crisis [Recovered/Resolved]
  - Pallor [Unknown]
  - Respiratory failure [Unknown]
  - Patent ductus arteriosus [Unknown]
  - Bronchopulmonary dysplasia [Unknown]
  - Off label use [Unknown]
